FAERS Safety Report 13523201 (Version 2)
Quarter: 2017Q2

REPORT INFORMATION
  Report Type: Report from Study
  Country: DE (occurrence: DE)
  Receive Date: 20170508
  Receipt Date: 20170522
  Transmission Date: 20170830
  Serious: Yes (Other)
  Sender: FDA-Public Use
  Company Number: DE-SA-2017SA081460

PATIENT
  Sex: Female

DRUGS (1)
  1. AUBAGIO [Suspect]
     Active Substance: TERIFLUNOMIDE
     Route: 048

REACTIONS (7)
  - Lip discolouration [Unknown]
  - Swelling face [Unknown]
  - Rash [Unknown]
  - Erythema [Unknown]
  - Oral herpes [Unknown]
  - Lip blister [Unknown]
  - Lip swelling [Unknown]

NARRATIVE: CASE EVENT DATE: 20170501
